FAERS Safety Report 6651899-X (Version None)
Quarter: 2010Q1

REPORT INFORMATION
  Report Type: 
  Country: None (occurrence: None)
  Receive Date: 20100323
  Receipt Date: 20100308
  Transmission Date: 20100710
  Serious: Yes (Other)
  Sender: FDA-Public Use
  Company Number: 2010000002

PATIENT
  Age: 45 Year
  Sex: Female
  Weight: 53 kg

DRUGS (5)
  1. ERLOTINIB (ERLOTINIB) (TABLET) (ERLOTINIB) [Suspect]
     Indication: LUNG ADENOCARCINOMA
     Dosage: 150 MG, QD, ORAL
     Route: 048
     Dates: start: 20090619, end: 20090723
  2. ERLOTINIB (ERLOTINIB) (TABLET) (ERLOTINIB) [Suspect]
     Indication: LUNG ADENOCARCINOMA
     Dosage: 150 MG, QD, ORAL
     Route: 048
     Dates: start: 20090725, end: 20091124
  3. PEMETREXED [Suspect]
     Indication: LUNG ADENOCARCINOMA
     Dosage: 720 MG, QD; INTRAVENOUS DRIP
     Route: 041
     Dates: start: 20091110, end: 20091117
  4. DECADRON [Concomitant]
  5. NAUZELIN (DOMPERIDONE) [Concomitant]

REACTIONS (7)
  - BLOOD CREATININE DECREASED [None]
  - HAEMOGLOBIN DECREASED [None]
  - MALIGNANT NEOPLASM PROGRESSION [None]
  - METASTASES TO CENTRAL NERVOUS SYSTEM [None]
  - NON-SMALL CELL LUNG CANCER STAGE IV [None]
  - PLATELET COUNT DECREASED [None]
  - RASH [None]
